FAERS Safety Report 7357511-9 (Version None)
Quarter: 2011Q1

REPORT INFORMATION
  Report Type: 
  Country: None (occurrence: None)
  Receive Date: 20110307
  Receipt Date: 20100922
  Transmission Date: 20110831
  Serious: No
  Sender: FDA-Public Use
  Company Number: AEUSA201000362

PATIENT
  Age: 60 Year
  Sex: Female

DRUGS (2)
  1. PROLASTIN [Concomitant]
  2. PROLASTIN-C [Suspect]
     Indication: ALPHA-1 ANTI-TRYPSIN DEFICIENCY
     Dosage: 4804 MG;QOW;IV
     Route: 042
     Dates: start: 20100101

REACTIONS (1)
  - INFUSION SITE PAIN [None]
